FAERS Safety Report 5382941-4 (Version None)
Quarter: 2007Q2

REPORT INFORMATION
  Report Type: 
  Country: None (occurrence: None)
  Receive Date: 20070629
  Receipt Date: 20070409
  Transmission Date: 20071010
  Serious: Yes (Hospitalization)
  Sender: FDA-Public Use
  Company Number: US200704001915

PATIENT
  Age: 81 Year
  Sex: Female

DRUGS (1)
  1. HUMALOG MIX 75/25 [Suspect]
     Indication: DIABETES MELLITUS
     Dates: start: 20060401

REACTIONS (3)
  - ANKLE FRACTURE [None]
  - BLOOD GLUCOSE INCREASED [None]
  - CAROTID ARTERY DISEASE [None]
